FAERS Safety Report 23554622 (Version 1)
Quarter: 2024Q1

REPORT INFORMATION
  Report Type: Spontaneous
  Country: AE (occurrence: AE)
  Receive Date: 20240222
  Receipt Date: 20240222
  Transmission Date: 20240410
  Serious: Yes (Other)
  Sender: FDA-Public Use
  Company Number: AE-PPDUS-2024ST001080

PATIENT
  Sex: Female

DRUGS (1)
  1. ORSERDU [Suspect]
     Active Substance: ELACESTRANT
     Indication: Product used for unknown indication
     Route: 048
     Dates: start: 20231205, end: 20240205

REACTIONS (4)
  - Haemothorax [Unknown]
  - Pleural effusion [Unknown]
  - Infection [Unknown]
  - Disease progression [Unknown]
